FAERS Safety Report 5206473-9 (Version None)
Quarter: 2006Q4

REPORT INFORMATION
  Report Type: 
  Country: None (occurrence: None)
  Receive Date: 20061026
  Receipt Date: 20060828
  Transmission Date: 20070319
  Serious: Yes (Other)
  Sender: FDA-Public Use
  Company Number: 2006083949

PATIENT
  Age: 58 Year
  Sex: Female
  Weight: 96.1626 kg

DRUGS (5)
  1. LYRICA [Suspect]
     Indication: NEUROPATHY PERIPHERAL
     Dosage: 150 JMG (75 MG, 2 IN 1 D)
     Dates: start: 20051220, end: 20060320
  2. INSULIN [Concomitant]
  3. METFORMIN HCL [Concomitant]
  4. SPIRONOLACTONE [Concomitant]
  5. VICODIN [Concomitant]

REACTIONS (2)
  - PLATELET COUNT DECREASED [None]
  - THROMBOCYTOPENIA [None]
